FAERS Safety Report 26188990 (Version 2)
Quarter: 2025Q4

REPORT INFORMATION
  Report Type: Spontaneous
  Country: US (occurrence: US)
  Receive Date: 20251223
  Receipt Date: 20251229
  Transmission Date: 20260117
  Serious: Yes (Death, Life-Threatening, Hospitalization, Other)
  Sender: CIPLA
  Company Number: US-CIPLA LTD.-2025US16116

PATIENT

DRUGS (1)
  1. LEUPROLIDE ACETATE [Suspect]
     Active Substance: LEUPROLIDE ACETATE
     Indication: Prostate cancer stage II
     Dosage: UNK (FIRST LEUPROLIDE INJECTION)
     Route: 065

REACTIONS (3)
  - Pituitary apoplexy [Fatal]
  - Hypertensive emergency [Fatal]
  - Haemorrhagic infarction [Fatal]
